FAERS Safety Report 5016933-1 (Version None)
Quarter: 2006Q2

REPORT INFORMATION
  Report Type: 
  Country: None (occurrence: None)
  Receive Date: 20060526
  Receipt Date: 20060509
  Transmission Date: 20061013
  Serious: Yes (Hospitalization)
  Sender: FDA-Public Use
  Company Number: ENTC2006-0132

PATIENT
  Age: 91 Year
  Sex: Female

DRUGS (4)
  1. STALEVO 150 [Suspect]
     Indication: PARKINSON'S DISEASE
     Dosage: 600 MG, 4 IN 1 D, ORAL
     Route: 048
     Dates: start: 20051201
  2. ARICEPT [Concomitant]
     Dates: start: 20060401, end: 20060424
  3. LEXAPRO [Suspect]
     Dosage: 50 MG, 1 IN 1 D,
     Dates: start: 20060424
  4. ZYPREXA [Suspect]
     Dates: start: 20060401, end: 20060424

REACTIONS (4)
  - HALLUCINATION, VISUAL [None]
  - LOSS OF CONSCIOUSNESS [None]
  - OBSESSIVE THOUGHTS [None]
  - SEDATION [None]
